FAERS Safety Report 5278388-1 (Version None)
Quarter: 2007Q1

REPORT INFORMATION
  Report Type: 
  Country: None (occurrence: None)
  Receive Date: 20070328
  Receipt Date: 20070320
  Transmission Date: 20070707
  Serious: Yes (Hospitalization)
  Sender: FDA-Public Use
  Company Number: US-BAYER-200710974BWH

PATIENT
  Age: 64 Year
  Sex: Female

DRUGS (9)
  1. NEXAVAR [Suspect]
     Indication: OVARIAN CANCER
     Dosage: TOTAL DAILY DOSE: 800 MG  UNIT DOSE: 200 MG
     Route: 048
     Dates: start: 20061201, end: 20070115
  2. NEXAVAR [Suspect]
     Dosage: TOTAL DAILY DOSE: 200 MG  UNIT DOSE: 200 MG
     Route: 048
     Dates: start: 20070101
  3. NEXAVAR [Suspect]
     Dosage: TOTAL DAILY DOSE: 200 MG  UNIT DOSE: 200 MG
     Route: 048
     Dates: start: 20070201, end: 20070222
  4. NEXAVAR [Suspect]
     Dosage: TOTAL DAILY DOSE: 400 MG  UNIT DOSE: 200 MG
     Route: 048
     Dates: start: 20070207
  5. NEXAVAR [Suspect]
     Dosage: TOTAL DAILY DOSE: 200 MG  UNIT DOSE: 200 MG
     Route: 048
     Dates: start: 20070305, end: 20070313
  6. ROXANOL [Concomitant]
  7. FENTANYL TRANSDERMAL PATCH [Concomitant]
  8. COUMADIN [Concomitant]
  9. TAXOTERE [Concomitant]
     Dates: start: 20070306

REACTIONS (4)
  - BLOOD PRESSURE INCREASED [None]
  - JOINT WARMTH [None]
  - RASH [None]
  - TENOSYNOVITIS [None]
